FAERS Safety Report 6291197-X (Version None)
Quarter: 2009Q3

REPORT INFORMATION
  Report Type: 
  Country: None (occurrence: None)
  Receive Date: 20090730
  Receipt Date: 20090722
  Transmission Date: 20100115
  Serious: Yes (Other)
  Sender: FDA-Public Use
  Company Number: KR-JNJFOC-20090706859

PATIENT
  Age: 24 Year
  Sex: Male

DRUGS (2)
  1. ULTRACET [Suspect]
     Route: 048
  2. ULTRACET [Suspect]
     Indication: POST-TRAUMATIC PAIN
     Dosage: STARTED IN 2004 OR 2005
     Route: 048

REACTIONS (6)
  - DEPRESSION [None]
  - DIARRHOEA [None]
  - DRUG DEPENDENCE [None]
  - HAEMATEMESIS [None]
  - INTESTINAL OBSTRUCTION [None]
  - OVERDOSE [None]
